FAERS Safety Report 11095984 (Version 1)
Quarter: 2015Q2

REPORT INFORMATION
  Report Type: Spontaneous
  Country: US (occurrence: US)
  Receive Date: 20150507
  Receipt Date: 20150507
  Transmission Date: 20150821
  Serious: Yes (Other)
  Sender: FDA-Public Use
  Company Number: US-AMGEN-USASP2015043512

PATIENT
  Age: 47 Year
  Sex: Male

DRUGS (1)
  1. ENBREL [Suspect]
     Active Substance: ETANERCEPT
     Indication: ANKYLOSING SPONDYLITIS
     Dosage: 50 MG, QWK
     Route: 065
     Dates: start: 20150216

REACTIONS (4)
  - Tooth abscess [Recovered/Resolved]
  - Confusional state [Not Recovered/Not Resolved]
  - Depressed mood [Not Recovered/Not Resolved]
  - Fear [Not Recovered/Not Resolved]

NARRATIVE: CASE EVENT DATE: 2015
